FAERS Safety Report 7865371-2 (Version None)
Quarter: 2011Q4

REPORT INFORMATION
  Report Type: 
  Country: None (occurrence: None)
  Receive Date: 20111028
  Receipt Date: 20101207
  Transmission Date: 20120403
  Serious: No
  Sender: FDA-Public Use
  Company Number: US-GLAXOSMITHKLINE-A0898373A

PATIENT
  Age: 60 Year
  Sex: Female

DRUGS (5)
  1. PREDNISONE [Concomitant]
  2. ALBUTEROL [Concomitant]
  3. PROZAC [Concomitant]
  4. LEVOTHYROXINE SODIUM [Concomitant]
  5. ADVAIR DISKUS 100/50 [Suspect]
     Indication: ASTHMA
     Dosage: 1PUFF TWICE PER DAY
     Route: 055
     Dates: start: 20101202, end: 20101205

REACTIONS (2)
  - HYPERSENSITIVITY [None]
  - PRODUCTIVE COUGH [None]
